FAERS Safety Report 25533649 (Version 2)
Quarter: 2025Q3

REPORT INFORMATION
  Report Type: Report from Study
  Country: CA (occurrence: CA)
  Receive Date: 20250709
  Receipt Date: 20250714
  Transmission Date: 20251021
  Serious: No
  Sender: ABBVIE
  Company Number: CA-ABBVIE-6357808

PATIENT
  Sex: Male

DRUGS (1)
  1. LUPRON [Suspect]
     Active Substance: LEUPROLIDE ACETATE
     Indication: Prostate cancer
     Dosage: FORM STRENGTH 30 MG
     Route: 065
     Dates: start: 20240723

REACTIONS (3)
  - Cervical spinal stenosis [Unknown]
  - Dysphagia [Unknown]
  - Odynophagia [Unknown]
